FAERS Safety Report 18031210 (Version 1)
Quarter: 2020Q3

REPORT INFORMATION
  Report Type: Spontaneous
  Country: ES (occurrence: ES)
  Receive Date: 20200716
  Receipt Date: 20200716
  Transmission Date: 20201103
  Serious: Yes (Death, Life-Threatening, Hospitalization, Other)
  Sender: FDA-Public Use
  Company Number: NVSC2020ES198731

PATIENT
  Age: 65 Year
  Sex: Female

DRUGS (10)
  1. GENOXAL [Suspect]
     Active Substance: CYCLOPHOSPHAMIDE
     Indication: PROPHYLAXIS AGAINST GRAFT VERSUS HOST DISEASE
     Dosage: UNK
     Route: 065
  2. ENVARSUS XR [Suspect]
     Active Substance: TACROLIMUS
     Indication: IMMUNOSUPPRESSANT DRUG THERAPY
     Dosage: UNK
     Route: 065
  3. MYCOPHENOLATE MOFETIL. [Suspect]
     Active Substance: MYCOPHENOLATE MOFETIL
     Indication: STEM CELL TRANSPLANT
     Dosage: UNK
     Route: 065
  4. MYCOPHENOLATE MOFETIL. [Suspect]
     Active Substance: MYCOPHENOLATE MOFETIL
     Indication: IMMUNOSUPPRESSANT DRUG THERAPY
  5. BUSULFAN. [Suspect]
     Active Substance: BUSULFAN
     Indication: BONE MARROW CONDITIONING REGIMEN
     Dosage: UNK
     Route: 065
  6. ACICLOVIR [Concomitant]
     Active Substance: ACYCLOVIR
     Indication: INFECTION PROPHYLAXIS
     Dosage: 1600 MG, QD
     Route: 065
  7. FLUCONAZOLE. [Concomitant]
     Active Substance: FLUCONAZOLE
     Indication: INFECTION PROPHYLAXIS
     Dosage: 400 MG
     Route: 065
  8. FLUDARABINE [Suspect]
     Active Substance: FLUDARABINE PHOSPHATE
     Indication: BONE MARROW CONDITIONING REGIMEN
     Dosage: UNK
     Route: 065
  9. LEVOFLOXACIN. [Concomitant]
     Active Substance: LEVOFLOXACIN
     Indication: INFECTION PROPHYLAXIS
     Dosage: 500 MG
     Route: 065
  10. ENVARSUS XR [Suspect]
     Active Substance: TACROLIMUS
     Indication: STEM CELL TRANSPLANT

REACTIONS (27)
  - Haematoma [Fatal]
  - Cerebral artery thrombosis [Fatal]
  - Splenic vein thrombosis [Fatal]
  - Thrombosis [Fatal]
  - Haemorrhage [Fatal]
  - Thrombocytopenia [Fatal]
  - Systemic mycosis [Fatal]
  - Mucosal inflammation [Fatal]
  - Fungal infection [Fatal]
  - Fat necrosis [Fatal]
  - Cardio-respiratory arrest [Fatal]
  - Neutropenia [Fatal]
  - Septic embolus [Fatal]
  - Pulmonary embolism [Fatal]
  - Ischaemic stroke [Fatal]
  - Respiratory failure [Fatal]
  - Gastritis fungal [Fatal]
  - Pancreatic necrosis [Fatal]
  - Epistaxis [Fatal]
  - Gastrointestinal necrosis [Fatal]
  - Off label use [Unknown]
  - Hypoxic-ischaemic encephalopathy [Fatal]
  - Acquired macroglossia [Fatal]
  - Pulmonary infarction [Fatal]
  - Cerebral infarction [Fatal]
  - Haemodynamic instability [Fatal]
  - Disseminated mucormycosis [Fatal]
